FAERS Safety Report 22972852 (Version 5)
Quarter: 2023Q4

REPORT INFORMATION
  Report Type: Spontaneous
  Country: ES (occurrence: ES)
  Receive Date: 20230922
  Receipt Date: 20231228
  Transmission Date: 20240109
  Serious: Yes (Other)
  Sender: FDA-Public Use
  Company Number: ES-ELI_LILLY_AND_COMPANY-ES202307011498

PATIENT
  Age: 55 Year
  Sex: Female

DRUGS (16)
  1. LOPERAMIDE HYDROCHLORIDE [Suspect]
     Active Substance: LOPERAMIDE HYDROCHLORIDE
     Indication: Diarrhoea
     Dosage: UNK UNK, UNKNOWN
     Route: 065
     Dates: start: 20230811
  2. DUPHALAC [Suspect]
     Active Substance: LACTULOSE
     Indication: Constipation
     Dosage: UNK UNK, UNKNOWN
     Route: 065
  3. MORPHINE [Suspect]
     Active Substance: MORPHINE
     Indication: Product used for unknown indication
     Dosage: UNK UNK, UNKNOWN
     Route: 065
  4. ABEMACICLIB [Suspect]
     Active Substance: ABEMACICLIB
     Indication: Breast cancer metastatic
     Dosage: 150 MG, BID
     Route: 048
     Dates: start: 20230718
  5. ABEMACICLIB [Suspect]
     Active Substance: ABEMACICLIB
     Dosage: 150 MG, UNKNOWN
     Route: 048
     Dates: start: 2023
  6. ABEMACICLIB [Suspect]
     Active Substance: ABEMACICLIB
     Dosage: 150 MG
     Route: 048
  7. DIMENHYDRINATE [Suspect]
     Active Substance: DIMENHYDRINATE
     Indication: Vomiting
     Dosage: UNK UNK, UNKNOWN
     Route: 065
  8. DIMENHYDRINATE [Suspect]
     Active Substance: DIMENHYDRINATE
     Indication: Nausea
  9. ABSTRAL [Suspect]
     Active Substance: FENTANYL CITRATE
     Indication: Discomfort
     Dosage: UNK UNK, UNKNOWN
     Route: 065
  10. ONDANSETRON [Suspect]
     Active Substance: ONDANSETRON
     Indication: Vomiting
     Dosage: UNK UNK, UNKNOWN
     Route: 065
  11. FULVESTRANT [Suspect]
     Active Substance: FULVESTRANT
     Indication: Breast cancer metastatic
     Route: 065
  12. VITAMIN K3 [MENADIONE SODIUM BISULFITE] [Concomitant]
     Indication: Product used for unknown indication
     Route: 065
  13. CALCIUM [Concomitant]
     Active Substance: CALCIUM
     Indication: Product used for unknown indication
     Route: 065
  14. ERGOCALCIFEROL [Concomitant]
     Active Substance: ERGOCALCIFEROL
     Indication: Product used for unknown indication
     Dosage: UNK
     Route: 065
  15. FULVESTRANT [Concomitant]
     Active Substance: FULVESTRANT
     Indication: Product used for unknown indication
     Route: 065
  16. MENADIONE [Concomitant]
     Active Substance: MENADIONE
     Indication: Product used for unknown indication
     Route: 065

REACTIONS (51)
  - Choroidal effusion [Recovered/Resolved]
  - Urinary retention [Not Recovered/Not Resolved]
  - Sciatica [Unknown]
  - Discomfort [Recovering/Resolving]
  - Depressed mood [Recovering/Resolving]
  - Sensitivity to weather change [Unknown]
  - Decreased appetite [Recovering/Resolving]
  - Post procedural complication [Unknown]
  - Diarrhoea [Recovered/Resolved]
  - Speech disorder [Unknown]
  - Sticky skin [Unknown]
  - Blood pressure decreased [Unknown]
  - Limb discomfort [Unknown]
  - Nervousness [Unknown]
  - White blood cell count decreased [Recovering/Resolving]
  - Haemoglobin decreased [Unknown]
  - Parosmia [Recovering/Resolving]
  - Asthenia [Recovering/Resolving]
  - Muscle spasms [Unknown]
  - Weight decreased [Not Recovered/Not Resolved]
  - Decreased immune responsiveness [Unknown]
  - Pain [Recovering/Resolving]
  - Gastrointestinal pain [Not Recovered/Not Resolved]
  - Gastric pH decreased [Not Recovered/Not Resolved]
  - Increased appetite [Unknown]
  - Chills [Not Recovered/Not Resolved]
  - Gallbladder disorder [Unknown]
  - Cystitis [Recovering/Resolving]
  - Tremor [Recovering/Resolving]
  - Pain in extremity [Recovering/Resolving]
  - Dysuria [Recovering/Resolving]
  - Dizziness postural [Recovering/Resolving]
  - Urine abnormality [Recovered/Resolved]
  - Arthralgia [Recovering/Resolving]
  - Weight increased [Unknown]
  - Malaise [Unknown]
  - Injection site pain [Recovering/Resolving]
  - Dysuria [Recovering/Resolving]
  - Dehydration [Recovering/Resolving]
  - Alopecia [Recovering/Resolving]
  - Gait disturbance [Recovering/Resolving]
  - Abdominal distension [Unknown]
  - Dyspepsia [Unknown]
  - Fatigue [Recovering/Resolving]
  - Nausea [Recovered/Resolved]
  - Vomiting [Recovered/Resolved]
  - Constipation [Not Recovered/Not Resolved]
  - Abdominal pain upper [Unknown]
  - Toxicity to various agents [Recovering/Resolving]
  - Vomiting [Recovering/Resolving]
  - Nausea [Recovering/Resolving]

NARRATIVE: CASE EVENT DATE: 20230719
